FAERS Safety Report 16501012 (Version 1)
Quarter: 2019Q3

REPORT INFORMATION
  Report Type: Spontaneous
  Country: ES (occurrence: ES)
  Receive Date: 20190701
  Receipt Date: 20190701
  Transmission Date: 20191004
  Serious: Yes (Other)
  Sender: FDA-Public Use
  Company Number: ES-TEVA-2019-ES-1070753

PATIENT
  Age: 53 Year
  Sex: Male
  Weight: 86 kg

DRUGS (3)
  1. IMATINIB (2833A) [Suspect]
     Active Substance: IMATINIB MESYLATE
     Dosage: 400MG/12H
     Route: 048
     Dates: start: 20180108, end: 20190311
  2. FENOFIBRATO (921A) [Concomitant]
  3. OMEPRAZOL (2141A) [Concomitant]
     Active Substance: OMEPRAZOLE

REACTIONS (1)
  - Necrotising panniculitis [Recovering/Resolving]

NARRATIVE: CASE EVENT DATE: 20190219
